FAERS Safety Report 6969303-0 (Version None)
Quarter: 2010Q3

REPORT INFORMATION
  Report Type: 
  Country: None (occurrence: None)
  Receive Date: 20100907
  Receipt Date: 20100827
  Transmission Date: 20110219
  Serious: Yes (Other)
  Sender: FDA-Public Use
  Company Number: CN-ELI_LILLY_AND_COMPANY-CN201008007979

PATIENT
  Age: 67 Year
  Sex: Female

DRUGS (3)
  1. GEMZAR [Suspect]
     Indication: URETERIC CANCER
     Dosage: 1.6 G, 1ST DAY OF 21DAY CYCLE
     Route: 042
     Dates: start: 20100515
  2. GEMZAR [Suspect]
     Dosage: 1.4 G, 8TH DAY OF 21DAY CYCLE
     Route: 042
     Dates: start: 20100515
  3. NORMAL SALINE [Concomitant]
     Dosage: 500 ML, AS NEEDED

REACTIONS (3)
  - CHEST X-RAY ABNORMAL [None]
  - COUGH [None]
  - PYREXIA [None]
